FAERS Safety Report 9400155 (Version 2)
Quarter: 2013Q3

REPORT INFORMATION
  Report Type: Spontaneous
  Country: CN (occurrence: CN)
  Receive Date: 20130715
  Receipt Date: 20130802
  Transmission Date: 20140515
  Serious: Yes (Other)
  Sender: FDA-Public Use
  Company Number: CN-PFIZER INC-2013205076

PATIENT
  Age: 93 Year
  Sex: Male

DRUGS (5)
  1. MS CONTIN [Suspect]
     Indication: INCISION SITE PAIN
     Dosage: 30 MG, SINGLE
     Route: 048
  2. HEPARIN CALCIUM [Concomitant]
     Dosage: UNK
  3. ASPIRIN [Concomitant]
     Dosage: UNK
  4. NIMODIPINE [Concomitant]
     Dosage: UNK
  5. CEFUROXIME [Concomitant]
     Dosage: UNK

REACTIONS (5)
  - Wrong technique in drug usage process [Unknown]
  - Depressed level of consciousness [Recovered/Resolved]
  - Delirium [Recovered/Resolved]
  - Hypertonia [Recovered/Resolved]
  - Dyskinesia [Recovered/Resolved]
